FAERS Safety Report 4890649-4 (Version None)
Quarter: 2006Q1

REPORT INFORMATION
  Report Type: 
  Country: None (occurrence: None)
  Receive Date: 20060125
  Receipt Date: 20050810
  Transmission Date: 20060701
  Serious: No
  Sender: FDA-Public Use
  Company Number: US-BRISTOL-MYERS SQUIBB COMPANY-13071279

PATIENT
  Age: 50 Year
  Sex: Male

DRUGS (1)
  1. CARDIOLITE [Suspect]
     Indication: CORONARY ARTERY DISEASE
     Dates: start: 20050810

REACTIONS (2)
  - INJECTION SITE RASH [None]
  - WHEEZING [None]
